FAERS Safety Report 4609600-7 (Version None)
Quarter: 2005Q1

REPORT INFORMATION
  Report Type: 
  Country: None (occurrence: None)
  Receive Date: 20050314
  Receipt Date: 20040519
  Transmission Date: 20050727
  Serious: Yes (Hospitalization)
  Sender: FDA-Public Use
  Company Number: DE-SHR-04-022315

PATIENT
  Age: 52 Year
  Sex: Male

DRUGS (6)
  1. INTERFERON BETA-1B VS. PLACEBO (CODE NOT BROKEN) INJECTION, 250 U G [Suspect]
     Indication: CARDIOMYOPATHY
     Dosage: 4 OR 8 MIU EVERY 2 D, SUBCUTANEOUS
     Route: 058
     Dates: start: 20040225
  2. ENALAPRIL MALEATE [Concomitant]
  3. TORSEMIDE [Concomitant]
  4. BISOPROLOL FUMARATE [Concomitant]
  5. FLUVASTATIN (FLUVASTATIN) [Concomitant]
  6. PANTOPRAZOLE (PANTOPRAZOLE) [Concomitant]

REACTIONS (4)
  - CHEST PAIN [None]
  - INGROWING NAIL [None]
  - PARONYCHIA [None]
  - POST PROCEDURAL COMPLICATION [None]
